FAERS Safety Report 6858190-7 (Version None)
Quarter: 2010Q3

REPORT INFORMATION
  Report Type: 
  Country: None (occurrence: None)
  Receive Date: 20100719
  Receipt Date: 20080129
  Transmission Date: 20110219
  Serious: No
  Sender: FDA-Public Use
  Company Number: US-PFIZER INC-2008010868

PATIENT
  Sex: Female
  Weight: 64.545 kg

DRUGS (5)
  1. CHANTIX [Suspect]
     Indication: SMOKING CESSATION THERAPY
     Dates: start: 20071201
  2. EFFEXOR [Concomitant]
  3. DOXEPIN HCL [Concomitant]
  4. TRICOR [Concomitant]
  5. LASIX [Concomitant]

REACTIONS (3)
  - BLADDER DISORDER [None]
  - NERVOUSNESS [None]
  - TOBACCO USER [None]
